FAERS Safety Report 10547976 (Version 2)
Quarter: 2014Q4

REPORT INFORMATION
  Report Type: Spontaneous
  Country: RU (occurrence: RU)
  Receive Date: 20141028
  Receipt Date: 20141117
  Transmission Date: 20150529
  Serious: Yes (Hospitalization)
  Sender: FDA-Public Use
  Company Number: RU-JNJFOC-20141016596

PATIENT
  Age: 50 Year
  Sex: Male

DRUGS (4)
  1. REMICADE [Suspect]
     Active Substance: INFLIXIMAB
     Indication: MUSCULAR WEAKNESS
     Route: 042
     Dates: start: 201404, end: 201404
  2. REMICADE [Suspect]
     Active Substance: INFLIXIMAB
     Indication: MUSCULAR WEAKNESS
     Route: 042
     Dates: start: 2013
  3. REMICADE [Suspect]
     Active Substance: INFLIXIMAB
     Indication: MUSCULAR WEAKNESS
     Route: 042
     Dates: start: 2006
  4. MOVALIS [Concomitant]
     Active Substance: MELOXICAM
     Route: 065

REACTIONS (3)
  - Hip arthroplasty [Unknown]
  - Bone tuberculosis [Unknown]
  - Product use issue [Unknown]

NARRATIVE: CASE EVENT DATE: 2006
